FAERS Safety Report 9783149 (Version 2)
Quarter: 2014Q1

REPORT INFORMATION
  Report Type: Spontaneous
  Country: FR (occurrence: FR)
  Receive Date: 20131226
  Receipt Date: 20140109
  Transmission Date: 20141002
  Serious: Yes (Other)
  Sender: FDA-Public Use
  Company Number: FR-TEVA-452033ISR

PATIENT
  Age: 46 Year
  Sex: Male

DRUGS (1)
  1. TRAMADOL [Suspect]
     Indication: FACIAL NEURALGIA
     Dosage: DF = TABLET
     Route: 065

REACTIONS (1)
  - Hypoglycaemia [Unknown]
